FAERS Safety Report 24565223 (Version 1)
Quarter: 2024Q4

REPORT INFORMATION
  Report Type: Spontaneous
  Country: US (occurrence: None)
  Receive Date: 20241029
  Receipt Date: 20241029
  Transmission Date: 20250115
  Serious: Yes (Other)
  Sender: Public
  Company Number: None

PATIENT
  Age: 81 Year
  Sex: Female

DRUGS (3)
  1. TOBRAMYCIN [Suspect]
     Active Substance: TOBRAMYCIN\TOBRAMYCIN SULFATE
     Indication: Infective pulmonary exacerbation of cystic fibrosis
     Dosage: FREQUENCY: INHALE 5ML BY NEBULIZATION TWICE DAILY. USE IN A 28 DAY ON/ THEN 28 DAY OFF CYCLE. PRETRE
     Route: 055
     Dates: start: 20240710
  2. DEXTROAMPHET [Concomitant]
  3. ELIQUIS [Concomitant]
     Active Substance: APIXABAN

REACTIONS (1)
  - Cardiac operation [None]

NARRATIVE: CASE EVENT DATE: 20240816
